FAERS Safety Report 11500564 (Version 1)
Quarter: 2015Q3

REPORT INFORMATION
  Report Type: Spontaneous
  Country: US (occurrence: None)
  Receive Date: 20150910
  Receipt Date: 20150910
  Transmission Date: 20151125
  Serious: No
  Sender: FDA-Public Use
  Company Number: 2014-PEL-000302

PATIENT
  Age: 27 Year
  Sex: Female

DRUGS (5)
  1. FENTANYL (FENTANYL) [Concomitant]
     Active Substance: FENTANYL
  2. SUCCINYLCHOLINE (SUXAMETHONNIUM CHLORIDE) [Concomitant]
  3. ROCURONIUM (ROCURONIUM) [Suspect]
     Active Substance: ROCURONIUM BROMIDE
     Indication: MAINTENANCE OF ANAESTHESIA
  4. ETOMIDATE (ETOMIDATE) [Concomitant]
  5. ISOFLURANE. [Suspect]
     Active Substance: ISOFLURANE
     Indication: MAINTENANCE OF ANAESTHESIA

REACTIONS (3)
  - Caesarean section [None]
  - Maternal exposure during delivery [None]
  - Arterial thrombosis [None]
